FAERS Safety Report 5257939-7 (Version None)
Quarter: 2007Q1

REPORT INFORMATION
  Report Type: 
  Country: None (occurrence: None)
  Receive Date: 20070307
  Receipt Date: 20061030
  Transmission Date: 20070707
  Serious: No
  Sender: FDA-Public Use
  Company Number: US-GLAXOSMITHKLINE-A0625389A

PATIENT
  Sex: Female

DRUGS (4)
  1. REQUIP [Suspect]
     Indication: RESTLESS LEGS SYNDROME
     Dosage: 1MG AT NIGHT
     Route: 048
     Dates: start: 20060601
  2. BLOOD PRESSURE MEDICATION [Concomitant]
  3. VITAMINS [Concomitant]
  4. ENZYME [Concomitant]

REACTIONS (2)
  - NAUSEA [None]
  - RETCHING [None]
